FAERS Safety Report 6924430-9 (Version None)
Quarter: 2010Q3

REPORT INFORMATION
  Report Type: 
  Country: None (occurrence: None)
  Receive Date: 20100811
  Receipt Date: 20100804
  Transmission Date: 20110219
  Serious: Yes (Disabling, Other)
  Sender: FDA-Public Use
  Company Number: DSA_43515_2010

PATIENT
  Sex: Female

DRUGS (9)
  1. XENAZINE [Suspect]
     Indication: TARDIVE DYSKINESIA
     Dosage: (12.5 MG OD ORAL)
     Route: 048
     Dates: start: 20100708
  2. COGENTIN [Suspect]
     Indication: AKATHISIA
     Dosage: (DF)
  3. COGENTIN [Suspect]
     Indication: INSOMNIA
     Dosage: (DF)
  4. COGENTIN [Suspect]
     Indication: TARDIVE DYSKINESIA
     Dosage: (DF)
  5. AMANTADINE [Suspect]
     Indication: PRODUCT USED FOR UNKNOWN INDICATION
     Dosage: (DF)
  6. ATIVAN [Suspect]
     Indication: AGITATION
     Dosage: (2 MG  (TOTAL DAILY DOSE))
  7. ATIVAN [Suspect]
     Indication: AKATHISIA
     Dosage: (2 MG  (TOTAL DAILY DOSE))
  8. ATIVAN [Suspect]
     Indication: INSOMNIA
     Dosage: (2 MG  (TOTAL DAILY DOSE))
  9. ATIVAN [Suspect]
     Indication: TARDIVE DYSKINESIA
     Dosage: (2 MG  (TOTAL DAILY DOSE))

REACTIONS (13)
  - BALANCE DISORDER [None]
  - BIPOLAR DISORDER [None]
  - CONDITION AGGRAVATED [None]
  - CONVULSION [None]
  - DRUG INEFFECTIVE [None]
  - DYSKINESIA [None]
  - IMPAIRED DRIVING ABILITY [None]
  - MEMORY IMPAIRMENT [None]
  - MENTAL IMPAIRMENT [None]
  - MULTIPLE DRUG OVERDOSE [None]
  - THOUGHT BLOCKING [None]
  - VERTIGO [None]
  - VISION BLURRED [None]
